FAERS Safety Report 9521375 (Version 1)
Quarter: 2013Q3

REPORT INFORMATION
  Report Type: Report from Study
  Country: CA (occurrence: CA)
  Receive Date: 20130913
  Receipt Date: 20130913
  Transmission Date: 20140515
  Serious: Yes (Other)
  Sender: FDA-Public Use
  Company Number: CA-JNJFOC-20130903419

PATIENT
  Age: 48 Year
  Sex: Female
  Weight: 54.4 kg

DRUGS (6)
  1. REMICADE [Suspect]
     Indication: CROHN^S DISEASE
     Route: 042
  2. REMICADE [Suspect]
     Indication: CROHN^S DISEASE
     Route: 042
     Dates: start: 20130711
  3. REMICADE [Suspect]
     Indication: CROHN^S DISEASE
     Dosage: THIS WAS THE PATIENT^S SECOND START WITH INFLIXIMAB.
     Route: 042
     Dates: start: 201208
  4. PENTASA [Concomitant]
  5. OMEPRAZOLE [Concomitant]
  6. ELTROXIN [Concomitant]

REACTIONS (1)
  - Inflammation [Recovered/Resolved]
